FAERS Safety Report 16652644 (Version 1)
Quarter: 2019Q3

REPORT INFORMATION
  Report Type: Spontaneous
  Country: US (occurrence: US)
  Receive Date: 20190731
  Receipt Date: 20190731
  Transmission Date: 20191004
  Serious: Yes (Hospitalization)
  Sender: FDA-Public Use
  Company Number: None

PATIENT
  Age: 43 Year
  Sex: Female

DRUGS (6)
  1. ENBREL [Concomitant]
     Active Substance: ETANERCEPT
     Dates: start: 20190712
  2. METHYLPRED TAB 4 MG [Concomitant]
  3. ALPRAZOLAM TAB 0.25 MG [Concomitant]
  4. OXYCOD/APAP TAB 5-325 MG [Concomitant]
  5. FORTEO [Suspect]
     Active Substance: TERIPARATIDE
     Indication: PRODUCT USED FOR UNKNOWN INDICATION
     Route: 058
     Dates: start: 20190708
  6. TIZANIDINE TAB 4 MG [Concomitant]

REACTIONS (1)
  - Peripheral swelling [None]
